FAERS Safety Report 8940279 (Version 2)
Quarter: 2013Q2

REPORT INFORMATION
  Report Type: Spontaneous
  Country: US (occurrence: US)
  Receive Date: 20121130
  Receipt Date: 20130502
  Transmission Date: 20140414
  Serious: No
  Sender: FDA-Public Use
  Company Number: US-009507513-1211USA012930

PATIENT
  Age: 4 Year
  Sex: Male
  Weight: 13.61 kg

DRUGS (3)
  1. CLARITIN CHEWABLE TABLETS [Suspect]
     Indication: SEASONAL ALLERGY
     Dosage: 5 MG, PRN
     Route: 048
  2. CLARITIN CHEWABLE TABLETS [Suspect]
     Indication: MEDICAL OBSERVATION
     Dosage: 5 MG, ONCE
     Route: 048
     Dates: start: 20121018
  3. CLARITIN CHEWABLE TABLETS [Suspect]
     Dosage: 5 MG, ONCE
     Route: 048
     Dates: start: 20121018

REACTIONS (1)
  - Overdose [Recovered/Resolved]
